FAERS Safety Report 10662185 (Version 2)
Quarter: 2015Q1

REPORT INFORMATION
  Report Type: Report from Study
  Country: FR (occurrence: FR)
  Receive Date: 20141218
  Receipt Date: 20150105
  Transmission Date: 20150720
  Serious: No
  Sender: FDA-Public Use
  Company Number: FR-009507513-1412FRA007480

PATIENT
  Age: 58 Year
  Sex: Male

DRUGS (17)
  1. DEROXAT [Concomitant]
     Active Substance: PAROXETINE HYDROCHLORIDE
     Indication: ADVERSE EVENT
     Dosage: 1 TABLET, QD
     Route: 048
     Dates: start: 20140408
  2. ACTISKENAN [Concomitant]
     Active Substance: MORPHINE SULFATE
     Indication: BONE PAIN
     Dosage: UNK
     Dates: start: 20120714
  3. OXYNORM [Concomitant]
     Active Substance: OXYCODONE HYDROCHLORIDE
     Indication: ADVERSE EVENT
     Dosage: 10 MG, PRN
     Route: 048
     Dates: start: 20131210
  4. OXYCONTIN [Concomitant]
     Active Substance: OXYCODONE HYDROCHLORIDE
     Indication: PROPHYLAXIS
     Dosage: 10 MG, EVERY NIGHT
     Route: 048
     Dates: start: 20140617
  5. MYOLASTAN [Concomitant]
     Active Substance: TETRAZEPAM
     Indication: BONE PAIN
     Dosage: UNK
     Dates: start: 20130213
  6. ZOMETA [Concomitant]
     Active Substance: ZOLEDRONIC ACID
     Indication: PROPHYLAXIS
     Dosage: 4 MG, QM
     Route: 042
     Dates: start: 20130228
  7. SERESTA [Concomitant]
     Active Substance: OXAZEPAM
     Indication: ADVERSE EVENT
     Dosage: 2 MG, QD
     Route: 048
     Dates: start: 20140730
  8. PEMBROLIZUMAB. [Suspect]
     Active Substance: PEMBROLIZUMAB
     Indication: MALIGNANT MELANOMA
     Dosage: 2 MG/KG, Q3W
     Route: 042
     Dates: start: 20130219
  9. BI-PROFENID [Concomitant]
     Active Substance: KETOPROFEN
     Indication: BONE PAIN
     Dosage: UNK
     Dates: start: 201301
  10. OXYNORM [Concomitant]
     Active Substance: OXYCODONE HYDROCHLORIDE
     Indication: BONE PAIN
     Dosage: 5 MG, QD
     Route: 048
     Dates: start: 20130329
  11. LYSANXIA [Concomitant]
     Active Substance: PRAZEPAM
     Indication: BONE PAIN
     Dosage: EVERY NIGHT
     Route: 048
     Dates: start: 20140121
  12. ACETAMINOPHEN. [Concomitant]
     Active Substance: ACETAMINOPHEN
     Indication: BONE PAIN
     Dosage: UNK
     Dates: start: 201301
  13. OXYCONTIN [Concomitant]
     Active Substance: OXYCODONE HYDROCHLORIDE
     Indication: BONE PAIN
     Dosage: 20 MG, QAM
     Route: 048
     Dates: start: 20140617
  14. TRANSIPEG [Concomitant]
     Active Substance: POLYETHYLENE GLYCOL 3350
     Indication: CONSTIPATION
     Dosage: UNK
     Dates: start: 20120714
  15. MINERAL OIL. [Concomitant]
     Active Substance: MINERAL OIL
     Indication: CONSTIPATION
     Dosage: UNK
     Dates: start: 20120714
  16. COVERSYL (PERINDOPRIL ERBUMINE) [Concomitant]
     Active Substance: PERINDOPRIL
     Indication: HYPERTENSION
     Dosage: 2.5 MG, QD
     Route: 048
     Dates: start: 20140730
  17. COVERSYL (PERINDOPRIL ERBUMINE) [Concomitant]
     Active Substance: PERINDOPRIL
     Indication: ADVERSE EVENT
     Dosage: 6 MG, QD
     Route: 048
     Dates: start: 20140730

REACTIONS (1)
  - Interstitial lung disease [Not Recovered/Not Resolved]

NARRATIVE: CASE EVENT DATE: 20141022
